FAERS Safety Report 8270151-2 (Version None)
Quarter: 2012Q2

REPORT INFORMATION
  Report Type: 
  Country: None (occurrence: None)
  Receive Date: 20120410
  Receipt Date: 20120403
  Transmission Date: 20120825
  Serious: Yes (Death, Hospitalization, Other)
  Sender: FDA-Public Use
  Company Number: PHHY2011BR097692

PATIENT
  Sex: Male

DRUGS (7)
  1. SANDOSTATIN LAR [Suspect]
     Indication: BLOOD GROWTH HORMONE INCREASED
  2. AMIODARONE HCL [Concomitant]
  3. ALDACTONE [Concomitant]
  4. CARVEDILOL [Concomitant]
  5. DIGOXIN [Concomitant]
  6. LOSARTAN POTASSIUM [Concomitant]
  7. WARFARIN SODIUM [Concomitant]
     Indication: HYPERCOAGULATION

REACTIONS (5)
  - CARDIOMEGALY [None]
  - FATIGUE [None]
  - MALAISE [None]
  - DYSPNOEA [None]
  - DEATH [None]
